FAERS Safety Report 4718958-X (Version None)
Quarter: 2005Q3

REPORT INFORMATION
  Report Type: 
  Country: None (occurrence: None)
  Receive Date: 20050719
  Receipt Date: 20050708
  Transmission Date: 20060218
  Serious: Yes (Disabling)
  Sender: FDA-Public Use
  Company Number: 214022

PATIENT
  Age: 41 Year
  Sex: Female

DRUGS (2)
  1. RITUXAN [Suspect]
     Indication: NON-HODGKIN'S LYMPHOMA
     Dosage: UNK, INTRAVENOUS
     Route: 042
  2. AUTOLOGOUS STEM CELLS (STEM CELLS) [Concomitant]

REACTIONS (1)
  - NEUTROPENIA [None]
